FAERS Safety Report 24791774 (Version 1)
Quarter: 2024Q4

REPORT INFORMATION
  Report Type: Spontaneous
  Country: CA (occurrence: CA)
  Receive Date: 20241231
  Receipt Date: 20241231
  Transmission Date: 20250115
  Serious: Yes (Other)
  Sender: TEVA
  Company Number: CA-TEVA-VS-3281356

PATIENT
  Age: 19 Year
  Sex: Female

DRUGS (1)
  1. LEVOFLOXACIN [Suspect]
     Active Substance: LEVOFLOXACIN
     Indication: Ear infection
     Dosage: DOSE FORM: NOT SPECIFIED
     Route: 048

REACTIONS (1)
  - Arthralgia [Not Recovered/Not Resolved]
